FAERS Safety Report 14973609 (Version 2)
Quarter: 2018Q2

REPORT INFORMATION
  Report Type: Spontaneous
  Country: GB (occurrence: GB)
  Receive Date: 20180605
  Receipt Date: 20180628
  Transmission Date: 20180711
  Serious: Yes (Hospitalization, Other)
  Sender: FDA-Public Use
  Company Number: GB-MYLANLABS-2018M1017901

PATIENT
  Age: 53 Year
  Sex: Female

DRUGS (3)
  1. AMISULPRIDE [Suspect]
     Active Substance: AMISULPRIDE
     Indication: PRODUCT USED FOR UNKNOWN INDICATION
     Dosage: UNK
     Dates: start: 2018
  2. CLOZARIL [Suspect]
     Active Substance: CLOZAPINE
     Indication: SCHIZOPHRENIA
     Dosage: UNK
     Route: 048
     Dates: start: 20120203, end: 20180214
  3. CLOZARIL [Suspect]
     Active Substance: CLOZAPINE
     Dosage: UNK
     Route: 048
     Dates: start: 20180606

REACTIONS (8)
  - Condition aggravated [Unknown]
  - Influenza [Unknown]
  - Pneumonia [Unknown]
  - Leukopenia [Not Recovered/Not Resolved]
  - Upper respiratory tract infection [Unknown]
  - Self-injurious ideation [Unknown]
  - Neutropenia [Unknown]
  - Suicidal ideation [Unknown]

NARRATIVE: CASE EVENT DATE: 2018
